FAERS Safety Report 5037661-2 (Version None)
Quarter: 2006Q2

REPORT INFORMATION
  Report Type: 
  Country: None (occurrence: None)
  Receive Date: 20060623
  Receipt Date: 20060608
  Transmission Date: 20061013
  Serious: Yes (Death)
  Sender: FDA-Public Use
  Company Number: SPVI-2006-00028

PATIENT
  Age: 24 Year
  Sex: Male

DRUGS (1)
  1. ADDERALL 15 [Suspect]

REACTIONS (6)
  - CARDIAC FAILURE CHRONIC [None]
  - CONGESTIVE CARDIOMYOPATHY [None]
  - DRUG ABUSER [None]
  - FALL [None]
  - SUDDEN DEATH [None]
  - VENTRICULAR FIBRILLATION [None]
